FAERS Safety Report 6528379-5 (Version None)
Quarter: 2010Q1

REPORT INFORMATION
  Report Type: 
  Country: None (occurrence: None)
  Receive Date: 20100106
  Receipt Date: 20091230
  Transmission Date: 20100710
  Serious: Yes (Other)
  Sender: FDA-Public Use
  Company Number: US-JNJFOC-20091105836

PATIENT
  Sex: Female
  Weight: 44.45 kg

DRUGS (2)
  1. TOPAMAX [Suspect]
     Indication: MIGRAINE
     Route: 048
  2. TOPAMAX [Suspect]
     Route: 048

REACTIONS (2)
  - IRRITABLE BOWEL SYNDROME [None]
  - WEIGHT DECREASED [None]
